FAERS Safety Report 11792574 (Version 6)
Quarter: 2016Q3

REPORT INFORMATION
  Report Type: Spontaneous
  Country: US (occurrence: US)
  Receive Date: 20151202
  Receipt Date: 20160902
  Transmission Date: 20161109
  Serious: Yes (Death, Hospitalization, Other)
  Sender: FDA-Public Use
  Company Number: US-JNJFOC-20151122793

PATIENT
  Age: 43 Year
  Sex: Male
  Weight: 201 kg

DRUGS (9)
  1. NAPROXEN. [Suspect]
     Active Substance: NAPROXEN
     Indication: ARTHRALGIA
     Dosage: DAILY
     Route: 048
     Dates: start: 201307
  2. ERTAPENEM [Concomitant]
     Active Substance: ERTAPENEM
     Indication: ESCHERICHIA INFECTION
     Route: 065
  3. TYLENOL EXTRA STRENGTH [Suspect]
     Active Substance: ACETAMINOPHEN
     Indication: ARTHRALGIA
     Dosage: AT APPROPRIATE TIMES AND IN APPROPRIATE AMOUNTS. 4.5-6 GRAMS DAILY
     Route: 048
     Dates: start: 201307, end: 20131113
  4. IBUPROFEN. [Suspect]
     Active Substance: IBUPROFEN
     Route: 065
  5. IBUPROFEN. [Suspect]
     Active Substance: IBUPROFEN
     Indication: ARTHRALGIA
     Route: 065
     Dates: start: 2013
  6. DEPO-MEDROL [Concomitant]
     Active Substance: METHYLPREDNISOLONE ACETATE
     Indication: OSTEOARTHRITIS
     Route: 014
     Dates: start: 20130729
  7. ALEVE [Suspect]
     Active Substance: NAPROXEN SODIUM
     Indication: ARTHRALGIA
     Dosage: DAILY BASIS
     Route: 065
     Dates: start: 2013
  8. MOTRIN [Concomitant]
     Active Substance: IBUPROFEN
     Indication: ARTHRALGIA
     Route: 065
     Dates: start: 201306
  9. LIDOCAINE. [Concomitant]
     Active Substance: LIDOCAINE
     Indication: OSTEOARTHRITIS
     Dosage: 8 CC
     Route: 014
     Dates: start: 20130729

REACTIONS (7)
  - Acute kidney injury [Fatal]
  - Hypotension [Fatal]
  - Overdose [Fatal]
  - Generalised oedema [Fatal]
  - Acute hepatic failure [Fatal]
  - Hepatic encephalopathy [Fatal]
  - Respiratory failure [Fatal]

NARRATIVE: CASE EVENT DATE: 201311
